FAERS Safety Report 16707710 (Version 1)
Quarter: 2019Q3

REPORT INFORMATION
  Report Type: Spontaneous
  Country: US (occurrence: US)
  Receive Date: 20190815
  Receipt Date: 20190815
  Transmission Date: 20191004
  Serious: Yes (Other)
  Sender: FDA-Public Use
  Company Number: US-SHIRE-US201926479

PATIENT
  Sex: Male

DRUGS (1)
  1. CARBATROL [Suspect]
     Active Substance: CARBAMAZEPINE
     Indication: SEIZURE
     Dosage: 400 MILLIGRAM, 2X/DAY:BID
     Route: 065

REACTIONS (7)
  - Influenza [Unknown]
  - Generalised tonic-clonic seizure [Unknown]
  - Focal dyscognitive seizures [Unknown]
  - Asthenia [Unknown]
  - Product quality issue [Unknown]
  - Cerebral disorder [Unknown]
  - Brain injury [Unknown]
